FAERS Safety Report 6844720-8 (Version None)
Quarter: 2010Q3

REPORT INFORMATION
  Report Type: 
  Country: None (occurrence: None)
  Receive Date: 20100715
  Receipt Date: 20100713
  Transmission Date: 20110219
  Serious: Yes (Death, Other)
  Sender: FDA-Public Use
  Company Number: AT-BRISTOL-MYERS SQUIBB COMPANY-15123821

PATIENT
  Age: 49 Year
  Sex: Male
  Weight: 69 kg

DRUGS (18)
  1. CISPLATIN [Suspect]
     Indication: NON-SMALL CELL LUNG CANCER
     Dosage: LAST INF ON 06APR2010
     Route: 042
     Dates: start: 20091130, end: 20100406
  2. PEMETREXED DISODIUM [Suspect]
     Indication: NON-SMALL CELL LUNG CANCER
     Dosage: LAST INF ON 06APR2010
     Route: 042
     Dates: start: 20091130, end: 20100406
  3. DICLOFENAC SODIUM [Concomitant]
  4. FOLSAN [Concomitant]
  5. LANSOPRAZOLE [Concomitant]
     Dosage: 1 DF=30 UNITS NOT SPECIFIED
  6. DEXAMETHASONE [Concomitant]
     Dates: start: 20100510
  7. LOVENOX [Concomitant]
     Indication: PULMONARY EMBOLISM
     Dosage: 1DF=80 UNITS NOT SPECIFIED +60 UNITS NOT SPECIFIED 19MAR TO 22APR2010 22APR TO 10MAY2010
     Route: 065
     Dates: start: 20100319, end: 20100510
  8. FRAGMIN [Concomitant]
     Indication: PROPHYLAXIS
     Dosage: 1DF=7500 UNITS NOT SPECIFIED
     Route: 065
     Dates: start: 20100511, end: 20100515
  9. PERFALGAN [Concomitant]
     Route: 065
     Dates: start: 20100511, end: 20100513
  10. LANSOBENE [Concomitant]
     Route: 065
     Dates: start: 20100506, end: 20100515
  11. VOLTAREN [Concomitant]
     Indication: PAIN IN EXTREMITY
     Route: 065
     Dates: start: 20100506, end: 20100515
  12. HYDAL [Concomitant]
     Indication: PAIN
     Route: 065
     Dates: start: 20100512, end: 20100515
  13. VENDAL [Concomitant]
     Dates: start: 20100513, end: 20100515
  14. NULYTELY [Concomitant]
     Indication: CONSTIPATION
     Route: 065
     Dates: start: 20100512, end: 20100515
  15. NOVALGIN [Concomitant]
     Indication: PAIN
     Route: 065
     Dates: start: 20100513, end: 20100515
  16. ROCEPHIN [Concomitant]
     Indication: LUNG INFECTION
     Route: 065
     Dates: start: 20100514, end: 20100515
  17. HALDOL [Concomitant]
     Indication: AGITATION
     Route: 065
     Dates: start: 20100512, end: 20100514
  18. HALDOL [Concomitant]
     Indication: FEAR
     Route: 065
     Dates: start: 20100512, end: 20100514

REACTIONS (1)
  - CEREBRAL ISCHAEMIA [None]
